FAERS Safety Report 25955294 (Version 1)
Quarter: 2025Q4

REPORT INFORMATION
  Report Type: Report from Study
  Country: KR (occurrence: KR)
  Receive Date: 20251024
  Receipt Date: 20251024
  Transmission Date: 20260118
  Serious: Yes (Hospitalization)
  Sender: IPSEN BIOPHARMACEUTICALS, INC.
  Company Number: KR-SERVIER-S23014455

PATIENT
  Age: 63 Year
  Sex: Female
  Weight: 68.45 kg

DRUGS (7)
  1. ONIVYDE [Suspect]
     Active Substance: IRINOTECAN HYDROCHLORIDE
     Indication: Pancreatic carcinoma
     Dosage: 119 MG, EVERY 2 WEEKS
     Dates: start: 20231124, end: 20231124
  2. FLUOROURACIL [Suspect]
     Active Substance: FLUOROURACIL
     Indication: Pancreatic carcinoma
     Dosage: 4080 MG, EVERY 2 WEEKS
     Dates: start: 20231124, end: 20231124
  3. NALOXONE HYDROCHLORIDE\OXYCODONE HYDROCHLORIDE [Concomitant]
     Active Substance: NALOXONE HYDROCHLORIDE\OXYCODONE HYDROCHLORIDE
     Indication: Pain
     Dosage: 1 DF, BID
     Route: 048
     Dates: start: 20230219
  4. OXYCODONE HYDROCHLORIDE [Concomitant]
     Active Substance: OXYCODONE HYDROCHLORIDE
     Indication: Pain
     Dosage: 5 MG, BID
     Route: 048
     Dates: start: 20230219
  5. NORZYME [Concomitant]
     Indication: Prophylaxis
     Dosage: 1 DF, TID
     Route: 048
     Dates: start: 20220506
  6. MEGACE F [Concomitant]
     Indication: Decreased appetite
     Dosage: 5 ML, QD
     Route: 048
     Dates: start: 20220523
  7. PANTOPRAZOLE SODIUM [Concomitant]
     Active Substance: PANTOPRAZOLE SODIUM
     Indication: Prophylaxis
     Dosage: 40 MG, QD
     Route: 048
     Dates: start: 20230726

REACTIONS (1)
  - Pancytopenia [Recovered/Resolved]

NARRATIVE: CASE EVENT DATE: 20231212
